FAERS Safety Report 5792642-6 (Version None)
Quarter: 2008Q2

REPORT INFORMATION
  Report Type: 
  Country: None (occurrence: None)
  Receive Date: 20080626
  Receipt Date: 20080615
  Transmission Date: 20081010
  Serious: Yes (Hospitalization)
  Sender: FDA-Public Use
  Company Number: US-PFIZER INC-2008052714

PATIENT

DRUGS (3)
  1. NARDIL [Suspect]
     Indication: OBSESSIVE-COMPULSIVE DISORDER
  2. NARDIL [Suspect]
     Indication: ANXIETY
  3. NARDIL [Suspect]
     Indication: DEPRESSION

REACTIONS (5)
  - ASTHENIA [None]
  - BALANCE DISORDER [None]
  - DIZZINESS [None]
  - FEELING ABNORMAL [None]
  - MEMORY IMPAIRMENT [None]
